FAERS Safety Report 14301727 (Version 1)
Quarter: 2017Q4

REPORT INFORMATION
  Report Type: Spontaneous
  Country: US (occurrence: US)
  Receive Date: 20171219
  Receipt Date: 20171219
  Transmission Date: 20180321
  Serious: Yes (Hospitalization, Other)
  Sender: FDA-Public Use
  Company Number: US-NEOS THERAPEUTICS, LP-2017NEO00110

PATIENT
  Age: 8 Year
  Sex: Male
  Weight: 23 kg

DRUGS (2)
  1. LISDEXAMFETAMINE DIMESYLATE [Concomitant]
     Active Substance: LISDEXAMFETAMINE DIMESYLATE
     Indication: ATTENTION DEFICIT/HYPERACTIVITY DISORDER
     Dosage: 20 MG, UNK
     Route: 065
  2. METHYLPHENIDATE. [Suspect]
     Active Substance: METHYLPHENIDATE
     Indication: ACCIDENTAL EXPOSURE TO PRODUCT
     Dosage: 36 MG, ONCE
     Route: 048

REACTIONS (9)
  - Overdose [Recovered/Resolved]
  - Accidental exposure to product [Recovered/Resolved]
  - Urinary incontinence [Recovered/Resolved]
  - Status epilepticus [Recovered/Resolved]
  - Hyponatraemia [Recovered/Resolved]
  - Hypothermia [Recovered/Resolved]
  - Water intoxication [Recovered/Resolved]
  - Polydipsia psychogenic [Recovered/Resolved]
  - Anal incontinence [Recovered/Resolved]
